FAERS Safety Report 8718970 (Version 2)
Quarter: 2012Q4

REPORT INFORMATION
  Report Type: 
  Country: US (occurrence: US)
  Receive Date: 20120811
  Receipt Date: 20121025
  Transmission Date: 20130627
  Serious: No
  Sender: FDA-Public Use
  Company Number: US-009507513-1208USA003164

PATIENT
  Sex: Female

DRUGS (1)
  1. IMPLANON [Suspect]
     Indication: CONTRACEPTION
     Dosage: 68 mg,  3 years implant
     Route: 059
     Dates: start: 20120717, end: 20120725

REACTIONS (3)
  - Implant site infection [Unknown]
  - Implant site erythema [Unknown]
  - Application site pain [Unknown]
